FAERS Safety Report 9314732 (Version 6)
Quarter: 2013Q4

REPORT INFORMATION
  Report Type: Report from Study
  Country: US (occurrence: US)
  Receive Date: 20130529
  Receipt Date: 20131028
  Transmission Date: 20140711
  Serious: No
  Sender: FDA-Public Use
  Company Number: US-VERTEX PHARMACEUTICALS INC-2013-006449

PATIENT
  Age: 60 Year
  Sex: Female

DRUGS (15)
  1. VX-950 (TELAPREVIR) [Suspect]
     Indication: HEPATITIS C
     Dosage: UNK
     Route: 048
     Dates: start: 20130419, end: 20130712
  2. PEGASYS [Suspect]
     Indication: HEPATITIS C
     Dosage: 180 ?G, QW
     Dates: start: 20130419
  3. RIBAVIRIN [Suspect]
     Indication: HEPATITIS C
     Dosage: 1000 MG, QD
     Dates: start: 20130419
  4. RIBAVIRIN [Suspect]
     Dosage: 600 UNK, UNK
  5. RIBAVIRIN [Suspect]
     Dosage: 200 UNK, UNK
  6. RIBAVIRIN [Suspect]
     Dosage: DOSE INCREASED
     Dates: start: 20130802
  7. ACYCLOVIR [Concomitant]
  8. AMLODIPINE [Concomitant]
  9. BUPROPION [Concomitant]
  10. CYMBALTA [Concomitant]
  11. ENALAPRIL [Concomitant]
  12. GABAPENTIN [Concomitant]
  13. TRUVADA [Concomitant]
  14. ISENTRESS [Concomitant]
  15. VITAMIN SUPPLEMENT [Concomitant]

REACTIONS (10)
  - Hypoaesthesia [Not Recovered/Not Resolved]
  - Furuncle [Not Recovered/Not Resolved]
  - Motion sickness [Unknown]
  - Off label use [Unknown]
  - Fatigue [Not Recovered/Not Resolved]
  - White blood cell count decreased [Not Recovered/Not Resolved]
  - Neutropenia [Not Recovered/Not Resolved]
  - Anaemia [Not Recovered/Not Resolved]
  - Vomiting [Unknown]
  - Nausea [Not Recovered/Not Resolved]
